FAERS Safety Report 7097892-7 (Version None)
Quarter: 2010Q4

REPORT INFORMATION
  Report Type: 
  Country: None (occurrence: None)
  Receive Date: 20101112
  Receipt Date: 20101102
  Transmission Date: 20110411
  Serious: No
  Sender: FDA-Public Use
  Company Number: US-B.I. PHARMACEUTICALS,INC./RIDGEFIELD-2010-BP-11266BP

PATIENT
  Age: 67 Year
  Sex: Female

DRUGS (2)
  1. MICARDIS HCT [Suspect]
     Indication: HYPERTENSION
     Route: 048
     Dates: start: 20091101, end: 20100928
  2. METFORMIN HCL [Concomitant]

REACTIONS (12)
  - BLOOD PRESSURE INADEQUATELY CONTROLLED [None]
  - CHROMATURIA [None]
  - DRY SKIN [None]
  - GLUCOSE TOLERANCE IMPAIRED [None]
  - HYPOTONIA [None]
  - MIGRAINE [None]
  - MOOD ALTERED [None]
  - MYALGIA [None]
  - SKIN DISCOLOURATION [None]
  - SKIN DISORDER [None]
  - SKIN EXFOLIATION [None]
  - URINARY TRACT INFECTION [None]
